FAERS Safety Report 23758453 (Version 1)
Quarter: 2024Q2

REPORT INFORMATION
  Report Type: Spontaneous
  Country: IT (occurrence: IT)
  Receive Date: 20240418
  Receipt Date: 20240418
  Transmission Date: 20240716
  Serious: Yes (Hospitalization)
  Sender: FDA-Public Use
  Company Number: None

PATIENT
  Age: 37 Year
  Sex: Female
  Weight: 47.5 kg

DRUGS (2)
  1. AJOVY [Suspect]
     Active Substance: FREMANEZUMAB-VFRM
     Indication: Migraine without aura
     Dosage: 225 MG ONCE A MONTH (MONTHLY ADMINISTRATION)
     Route: 058
     Dates: start: 20230929
  2. AJOVY [Suspect]
     Active Substance: FREMANEZUMAB-VFRM
     Indication: Migraine without aura
     Dosage: 675 MG EVERY THREE MONTHS (QUARTERLY ADMINISTRATION)
     Route: 058
     Dates: start: 20210707, end: 20230717

REACTIONS (1)
  - Poorly differentiated thyroid carcinoma [Unknown]

NARRATIVE: CASE EVENT DATE: 20240101
